FAERS Safety Report 10146355 (Version 1)
Quarter: 2014Q2

REPORT INFORMATION
  Report Type: Spontaneous
  Country: US (occurrence: None)
  Receive Date: 20140430
  Receipt Date: 20140430
  Transmission Date: 20141212
  Serious: No
  Sender: FDA-Public Use
  Company Number: None

PATIENT
  Age: 40 Year
  Sex: Male
  Weight: 81.65 kg

DRUGS (4)
  1. CETIRIZINE 10MG 4H2 [Suspect]
     Indication: SEASONAL ALLERGY
     Dosage: ONCE DAILY
  2. CETIRIZINE 10MG 4H2 [Suspect]
     Indication: ASTHMA
     Dosage: ONCE DAILY
  3. LORATADINE [Suspect]
     Indication: SEASONAL ALLERGY
  4. LORATADINE [Suspect]
     Indication: ASTHMA

REACTIONS (5)
  - Pruritus [None]
  - Urticaria [None]
  - Drug withdrawal syndrome [None]
  - Product quality issue [None]
  - Drug dependence [None]
